FAERS Safety Report 8958240 (Version 1)
Quarter: 2012Q4

REPORT INFORMATION
  Report Type: 
  Country: US (occurrence: US)
  Receive Date: 20121211
  Receipt Date: 20121211
  Transmission Date: 20130627
  Serious: No
  Sender: FDA-Public Use
  Company Number: US-ASTRAZENECA-2012SE90393

PATIENT
  Age: 60 Year
  Sex: Female

DRUGS (2)
  1. TENORMIN [Suspect]
     Route: 048
  2. ZIAC [Suspect]
     Route: 065

REACTIONS (1)
  - Blood pressure inadequately controlled [Unknown]
